FAERS Safety Report 25972980 (Version 1)
Quarter: 2025Q4

REPORT INFORMATION
  Report Type: Spontaneous
  Country: US (occurrence: US)
  Receive Date: 20251029
  Receipt Date: 20251029
  Transmission Date: 20260117
  Serious: Yes (Other)
  Sender: SUNOVION
  Company Number: US-SUMITOMO PHARMA SWITZERLAND GMBH-2025SPA013741

PATIENT
  Age: 81 Year
  Sex: Female
  Weight: 63.492 kg

DRUGS (3)
  1. GEMTESA [Suspect]
     Active Substance: VIBEGRON
     Indication: Bladder disorder
     Dosage: 75 MILLIGRAM, ONCE A DAY
  2. LEVOTHYROXINE [Concomitant]
     Active Substance: LEVOTHYROXINE
     Indication: Thyroid disorder
     Dosage: 0.100 MILLIGRAM, ONE A DAY; BEEN TAKING TI  FOR QUITE SOME TIME
  3. DULOXETINE [Concomitant]
     Active Substance: DULOXETINE
     Indication: Product used for unknown indication
     Dosage: 60 MILLIGRAM,  ONE A DAY; HAS BEEN TAKING  IT FOR ^MAYBE 2 YEARS BUT  NOT QUITE^

REACTIONS (3)
  - Dementia [Unknown]
  - Blood pressure abnormal [Unknown]
  - Drug effect less than expected [Unknown]
